FAERS Safety Report 15356464 (Version 1)
Quarter: 2018Q3

REPORT INFORMATION
  Report Type: Spontaneous
  Country: US (occurrence: US)
  Receive Date: 20180830
  Receipt Date: 20180830
  Transmission Date: 20181010
  Serious: Yes (Other)
  Sender: FDA-Public Use
  Company Number: None

PATIENT
  Age: 26 Year
  Sex: Female

DRUGS (1)
  1. MAVYRET [Suspect]
     Active Substance: GLECAPREVIR\PIBRENTASVIR
     Indication: HEPATITIS C
     Dates: start: 20180813, end: 20180828

REACTIONS (5)
  - Peripheral swelling [None]
  - Gait disturbance [None]
  - Fatigue [None]
  - Joint swelling [None]
  - Pain [None]

NARRATIVE: CASE EVENT DATE: 20180828
